FAERS Safety Report 24584573 (Version 1)
Quarter: 2024Q4

REPORT INFORMATION
  Report Type: Spontaneous
  Country: US (occurrence: None)
  Receive Date: 20241106
  Receipt Date: 20241106
  Transmission Date: 20250115
  Serious: Yes (Hospitalization)
  Sender: Public
  Company Number: None

PATIENT
  Sex: Male

DRUGS (3)
  1. GLASSIA [Suspect]
     Active Substance: .ALPHA.1-PROTEINASE INHIBITOR HUMAN
     Indication: Alpha-1 antitrypsin deficiency
     Dosage: 8218 UNITS EVERY WEEK IV
     Route: 042
     Dates: start: 202011
  2. NORMAL SALINE FLUSH (10ML) [Concomitant]
  3. EPINEPHRINE [Concomitant]

REACTIONS (2)
  - Lung disorder [None]
  - COVID-19 [None]
